FAERS Safety Report 19635546 (Version 1)
Quarter: 2021Q3

REPORT INFORMATION
  Report Type: Spontaneous
  Country: US (occurrence: US)
  Receive Date: 20210729
  Receipt Date: 20210729
  Transmission Date: 20211014
  Serious: No
  Sender: FDA-Public Use
  Company Number: US-PERRIGO-20US012210

PATIENT
  Age: 43 Year
  Sex: Male
  Weight: 72.56 kg

DRUGS (2)
  1. MINOXIDIL. [Suspect]
     Active Substance: MINOXIDIL
     Dosage: 0.25 TO 0.5 ML, BID
     Route: 061
     Dates: start: 20200628, end: 20200821
  2. MINOXIDIL. [Suspect]
     Active Substance: MINOXIDIL
     Indication: ALOPECIA
     Dosage: 1 ML, BID
     Route: 061
     Dates: start: 20200620, end: 20200627

REACTIONS (7)
  - Product administered at inappropriate site [Recovered/Resolved]
  - Application site pain [Recovered/Resolved]
  - Drug ineffective [Unknown]
  - Application site irritation [Recovered/Resolved]
  - Underdose [Recovered/Resolved]
  - Application site rash [Recovered/Resolved]
  - Hypertrichosis [Not Recovered/Not Resolved]

NARRATIVE: CASE EVENT DATE: 20200620
